FAERS Safety Report 17456339 (Version 1)
Quarter: 2020Q1

REPORT INFORMATION
  Report Type: Spontaneous
  Country: US (occurrence: US)
  Receive Date: 20200225
  Receipt Date: 20200225
  Transmission Date: 20200409
  Serious: No
  Sender: FDA-Public Use
  Company Number: None

PATIENT

DRUGS (1)
  1. ALKA-SELTZER PLUS SEVERE COUGH MUCUS AND CONGESTION LIQUID GELS [Suspect]
     Active Substance: ACETAMINOPHEN\DEXTROMETHORPHAN HYDROBROMIDE\GUAIFENESIN\PHENYLEPHRINE HYDROCHLORIDE
     Indication: NASOPHARYNGITIS

REACTIONS (7)
  - Product storage error [None]
  - Product outer packaging issue [None]
  - Circumstance or information capable of leading to medication error [None]
  - Incorrect disposal of product [None]
  - Product label on wrong product [None]
  - Wrong drug [None]
  - Product tampering [None]

NARRATIVE: CASE EVENT DATE: 20200222
